FAERS Safety Report 25589100 (Version 1)
Quarter: 2025Q3

REPORT INFORMATION
  Report Type: Spontaneous
  Country: US (occurrence: US)
  Receive Date: 20250722
  Receipt Date: 20250722
  Transmission Date: 20251021
  Serious: Yes (Other)
  Sender: COOPERSURGICAL
  Company Number: US-COOPERSURGICAL, INC.-2025CPS005524

PATIENT
  Age: 38 Year
  Sex: Female
  Weight: 87.075 kg

DRUGS (1)
  1. PARAGARD T 380A [Suspect]
     Active Substance: COPPER
     Indication: Contraception
     Route: 015
     Dates: start: 20090528

REACTIONS (26)
  - Reproductive complication associated with device [Not Recovered/Not Resolved]
  - High risk pregnancy [Recovered/Resolved]
  - Abortion induced [Recovered/Resolved]
  - Abortion spontaneous [Recovered/Resolved]
  - Salpingectomy [Recovered/Resolved]
  - Endometrial ablation [Recovered/Resolved]
  - Cervix carcinoma [Unknown]
  - Pelvic organ injury [Not Recovered/Not Resolved]
  - Device breakage [Not Recovered/Not Resolved]
  - Foreign body in reproductive tract [Not Recovered/Not Resolved]
  - Complication of device removal [Not Recovered/Not Resolved]
  - Embedded device [Not Recovered/Not Resolved]
  - Pregnancy with contraceptive device [Recovered/Resolved]
  - Drug ineffective [Unknown]
  - Procedural haemorrhage [Unknown]
  - Anxiety [Not Recovered/Not Resolved]
  - Depression [Not Recovered/Not Resolved]
  - Post-traumatic stress disorder [Not Recovered/Not Resolved]
  - Scar [Recovered/Resolved]
  - Dyspareunia [Not Recovered/Not Resolved]
  - Pain [Not Recovered/Not Resolved]
  - Vaginal infection [Unknown]
  - Device dislocation [Not Recovered/Not Resolved]
  - Abnormal uterine bleeding [Unknown]
  - Heavy menstrual bleeding [Recovered/Resolved]
  - Amenorrhoea [Not Recovered/Not Resolved]

NARRATIVE: CASE EVENT DATE: 20170914
